FAERS Safety Report 20417336 (Version 2)
Quarter: 2022Q3

REPORT INFORMATION
  Report Type: Report from Study
  Country: US (occurrence: US)
  Receive Date: 20220202
  Receipt Date: 20220721
  Transmission Date: 20221026
  Serious: Yes (Hospitalization, Other)
  Sender: FDA-Public Use
  Company Number: US-TAKEDA-2021TUS083062

PATIENT
  Sex: Female
  Weight: 54.422 kg

DRUGS (28)
  1. HUMAN IMMUNOGLOBULIN G [Suspect]
     Active Substance: HUMAN IMMUNOGLOBULIN G
     Indication: Immunodeficiency common variable
     Dosage: 45 GRAM, Q4WEEKS
     Route: 042
     Dates: start: 20100520
  2. HUMAN IMMUNOGLOBULIN G [Suspect]
     Active Substance: HUMAN IMMUNOGLOBULIN G
     Dosage: 45 GRAM, Q4WEEKS
     Route: 042
     Dates: start: 20191108
  3. DIPHENHYDRAMINE HYDROCHLORIDE [Concomitant]
     Active Substance: DIPHENHYDRAMINE HYDROCHLORIDE
  4. XANAX [Concomitant]
     Active Substance: ALPRAZOLAM
  5. NEURONTIN [Concomitant]
     Active Substance: GABAPENTIN
  6. EPINEPHRINE [Concomitant]
     Active Substance: EPINEPHRINE
  7. SODIUM CHLORIDE [Concomitant]
     Active Substance: SODIUM CHLORIDE
  8. AMLODIPINE BESYLATE [Concomitant]
     Active Substance: AMLODIPINE BESYLATE
  9. ALLEGRA ALLERGY [Concomitant]
     Active Substance: FEXOFENADINE HYDROCHLORIDE
  10. BREO ELLIPTA [Concomitant]
     Active Substance: FLUTICASONE FUROATE\VILANTEROL TRIFENATATE
  11. ACETAMINOPHEN [Concomitant]
     Active Substance: ACETAMINOPHEN
  12. ATORVASTATIN CALCIUM [Concomitant]
     Active Substance: ATORVASTATIN CALCIUM
  13. NAMENDA XR [Concomitant]
     Active Substance: MEMANTINE HYDROCHLORIDE
  14. SPRODIAMIDE [Concomitant]
  15. ALBUTEROL\IPRATROPIUM [Concomitant]
     Active Substance: ALBUTEROL\IPRATROPIUM
  16. ZOFRAN [Concomitant]
     Active Substance: ONDANSETRON HYDROCHLORIDE
  17. DEXTROSE [Concomitant]
     Active Substance: DEXTROSE
  18. PROAIR HFA [Concomitant]
     Active Substance: ALBUTEROL SULFATE
  19. TYLENOL [Concomitant]
     Active Substance: ACETAMINOPHEN
  20. COLACE [Concomitant]
     Active Substance: DOCUSATE SODIUM
  21. LASIX [Concomitant]
     Active Substance: FUROSEMIDE
  22. SOLU-MEDROL [Concomitant]
     Active Substance: METHYLPREDNISOLONE SODIUM SUCCINATE
  23. PROTONIX [Concomitant]
     Active Substance: PANTOPRAZOLE SODIUM
  24. ARICEPT [Concomitant]
     Active Substance: DONEPEZIL HYDROCHLORIDE
  25. INCRUSE ELLIPTA [Concomitant]
     Active Substance: UMECLIDINIUM BROMIDE
  26. ZOLOFT [Concomitant]
     Active Substance: SERTRALINE HYDROCHLORIDE
  27. MUCINEX [Concomitant]
     Active Substance: GUAIFENESIN
  28. DIPHENHYDRAMINE [Concomitant]
     Active Substance: DIPHENHYDRAMINE

REACTIONS (3)
  - Dementia Alzheimer^s type [Unknown]
  - COVID-19 [Unknown]
  - Respiratory tract infection [Unknown]
